FAERS Safety Report 21795970 (Version 1)
Quarter: 2022Q4

REPORT INFORMATION
  Report Type: Spontaneous
  Country: EG (occurrence: EG)
  Receive Date: 20221229
  Receipt Date: 20221229
  Transmission Date: 20230113
  Serious: Yes (Other)
  Sender: FDA-Public Use
  Company Number: EG-PFIZER INC-PV202200132095

PATIENT
  Age: 60 Year
  Sex: Male

DRUGS (1)
  1. SUTENT [Suspect]
     Active Substance: SUNITINIB MALATE
     Indication: Gastrointestinal stromal tumour
     Dosage: 37.5 MG, CYCLIC [ONCE DAILY, FOR 4 CONSECUTIVE WKS, FOLLOWED BY A 2-WKS REST PERIOD (SCHEDULE 4/2)]
     Route: 048
     Dates: start: 20200807

REACTIONS (1)
  - Colectomy [Unknown]
